FAERS Safety Report 20919910 (Version 9)
Quarter: 2023Q1

REPORT INFORMATION
  Report Type: Report from Study
  Country: SG (occurrence: SG)
  Receive Date: 20220606
  Receipt Date: 20230209
  Transmission Date: 20230418
  Serious: Yes (Hospitalization)
  Sender: FDA-Public Use
  Company Number: SG-GLAXOSMITHKLINE-SG2022GSK086102

PATIENT

DRUGS (25)
  1. BELANTAMAB MAFODOTIN [Suspect]
     Active Substance: BELANTAMAB MAFODOTIN
     Indication: Plasma cell myeloma
     Dosage: 135 MG, CYC (CYCLE 1 DAY 1) 2.5 MG/KG
     Route: 042
     Dates: start: 20220526
  2. ALLOPURINOL [Concomitant]
     Active Substance: ALLOPURINOL
     Indication: Prophylaxis
     Dosage: 300 MG, QD
     Route: 048
     Dates: start: 20220526, end: 20220601
  3. ACYCLOVIR [Concomitant]
     Active Substance: ACYCLOVIR
     Indication: Antiviral prophylaxis
     Dosage: 400 MG, BID
     Route: 048
     Dates: start: 2019
  4. HYDROCORTISONE [Concomitant]
     Active Substance: HYDROCORTISONE
     Indication: Prophylaxis
     Dosage: 100 MG, SINGLE
     Route: 042
     Dates: start: 20220526, end: 20220526
  5. HYDROCORTISONE [Concomitant]
     Active Substance: HYDROCORTISONE
     Indication: Prophylaxis
     Dosage: 100 MG, SINGLE
     Route: 042
     Dates: start: 20220602, end: 20220602
  6. ACETAMINOPHEN [Concomitant]
     Active Substance: ACETAMINOPHEN
     Indication: Prophylaxis
     Dosage: 1 G, TID
     Route: 048
     Dates: start: 20220526, end: 20220526
  7. DIPHENHYDRAMINE HYDROCHLORIDE [Concomitant]
     Active Substance: DIPHENHYDRAMINE HYDROCHLORIDE
     Indication: Prophylaxis
     Dosage: 25 MG, SINGLE
     Route: 042
     Dates: start: 20220526, end: 20220526
  8. TRAMADOL [Concomitant]
     Active Substance: TRAMADOL
     Indication: Pain prophylaxis
     Dosage: 25 MG, SINGLE
     Route: 048
     Dates: start: 20220528, end: 20220528
  9. POTASSIUM CHLORIDE [Concomitant]
     Active Substance: POTASSIUM CHLORIDE
     Indication: Metabolic disorder prophylaxis
     Dosage: 10 ML, TID
     Route: 048
     Dates: start: 20220529, end: 20220530
  10. POTASSIUM CHLORIDE [Concomitant]
     Active Substance: POTASSIUM CHLORIDE
     Dosage: 20 MMOL, QD
     Route: 042
     Dates: start: 20220601, end: 20220602
  11. MELATONIN [Concomitant]
     Active Substance: MELATONIN
     Indication: Psychiatric disorder prophylaxis
     Dosage: 2 MG, QD
     Route: 048
     Dates: start: 20220529, end: 20220530
  12. HALOPERIDOL [Concomitant]
     Active Substance: HALOPERIDOL
     Indication: Prophylaxis
     Dosage: 1 MG, BID
     Route: 058
     Dates: start: 20220530, end: 20220530
  13. FUROSEMIDE [Concomitant]
     Active Substance: FUROSEMIDE
     Indication: Prophylaxis
     Dosage: 20 MG, SINGLE
     Route: 042
     Dates: start: 20220530, end: 20220530
  14. FUROSEMIDE [Concomitant]
     Active Substance: FUROSEMIDE
     Dosage: 40 MG, SINGLE
     Route: 042
     Dates: start: 20220531, end: 20220531
  15. FUROSEMIDE [Concomitant]
     Active Substance: FUROSEMIDE
     Dosage: 20 MG, SINGLE
     Route: 042
     Dates: start: 20220531, end: 20220601
  16. FUROSEMIDE [Concomitant]
     Active Substance: FUROSEMIDE
     Dosage: 60 MG, SINGLE
     Route: 042
     Dates: start: 20220602, end: 20220602
  17. BISACODYL [Concomitant]
     Active Substance: BISACODYL
     Indication: Constipation prophylaxis
     Dosage: 10 MG, SINGLE
     Route: 054
     Dates: start: 20220601, end: 20220601
  18. VANCOMYCIN [Concomitant]
     Active Substance: VANCOMYCIN
     Indication: Infection prophylaxis
     Dosage: 1500 MG, SINGLE
     Route: 042
     Dates: start: 20220602, end: 20220602
  19. NOREPINEPHRINE [Concomitant]
     Active Substance: NOREPINEPHRINE
     Indication: Vascular disorder prophylaxis
     Dosage: 4 MG, SINGLE
     Route: 058
     Dates: start: 20220602, end: 20220602
  20. SUCCINYLCHOLINE CHLORIDE [Concomitant]
     Active Substance: SUCCINYLCHOLINE CHLORIDE
     Indication: Prophylaxis
     Dosage: 100 MG, SINGLE (INJECTION)
     Route: 042
     Dates: start: 20220530, end: 20220530
  21. MIDAZOLAM [Concomitant]
     Active Substance: MIDAZOLAM
     Indication: Prophylaxis
     Dosage: 2 MG, SINGLE
     Route: 042
     Dates: start: 20220530, end: 20220530
  22. PROPOFOL [Concomitant]
     Active Substance: PROPOFOL
     Indication: Prophylaxis
     Dosage: 10 MG, SINGLE (INJECTION)
     Route: 042
     Dates: start: 20220530, end: 20220530
  23. FENTANYL [Concomitant]
     Active Substance: FENTANYL
     Indication: Pain prophylaxis
     Dosage: 140 UG, SINGLE
     Route: 042
     Dates: start: 20220530, end: 20220530
  24. PHYTONADIONE [Concomitant]
     Active Substance: PHYTONADIONE
     Indication: Haemorrhage prophylaxis
     Dosage: 10 MG, QD
     Route: 042
     Dates: start: 20220531, end: 20220602
  25. PROPARACAINE HYDROCHLORIDE [Concomitant]
     Active Substance: PROPARACAINE HYDROCHLORIDE
     Indication: Haemorrhage prophylaxis
     Dosage: 2 GTT, QD
     Route: 050
     Dates: start: 20220526, end: 20220527

REACTIONS (2)
  - Hypertransaminasaemia [Not Recovered/Not Resolved]
  - Lactic acidosis [Not Recovered/Not Resolved]

NARRATIVE: CASE EVENT DATE: 20220529
